FAERS Safety Report 5127158-3 (Version None)
Quarter: 2006Q4

REPORT INFORMATION
  Report Type: 
  Country: None (occurrence: None)
  Receive Date: 20061010
  Receipt Date: 20060928
  Transmission Date: 20070319
  Serious: Yes (Other)
  Sender: FDA-Public Use
  Company Number: 2006107590

PATIENT
  Age: 66 Year
  Sex: Female
  Weight: 63.5036 kg

DRUGS (3)
  1. LIPITOR [Suspect]
     Indication: HYPERLIPIDAEMIA
     Dosage: (20 MG, 1 IN 1 D), ORAL
     Route: 048
     Dates: start: 20050517, end: 20051005
  2. DIOVAN [Suspect]
     Indication: HYPERTENSION
     Dosage: 80 MG (80 MG, 1 IN 1 D), ORAL
     Route: 048
     Dates: start: 20050517, end: 20051005
  3. DYAZIDE [Concomitant]

REACTIONS (7)
  - ALANINE AMINOTRANSFERASE INCREASED [None]
  - ASPARTATE AMINOTRANSFERASE INCREASED [None]
  - BLOOD ALKALINE PHOSPHATASE INCREASED [None]
  - ECZEMA [None]
  - EXCORIATION [None]
  - GLOMERULAR FILTRATION RATE DECREASED [None]
  - PRURITUS [None]
